FAERS Safety Report 5299269-3 (Version None)
Quarter: 2007Q2

REPORT INFORMATION
  Report Type: 
  Country: None (occurrence: None)
  Receive Date: 20070410
  Receipt Date: 20051216
  Transmission Date: 20071010
  Serious: Yes (Life-Threatening)
  Sender: FDA-Public Use
  Company Number: BDI-007801

PATIENT
  Age: 34 Year
  Sex: Female

DRUGS (3)
  1. ISOVUE-370 [Suspect]
     Indication: CATHETERISATION CARDIAC
     Dosage: 100 ML ONCE IV
     Route: 042
     Dates: start: 20051212, end: 20051212
  2. ISOVUE-370 [Suspect]
     Indication: CHEST PAIN
     Dosage: 100 ML ONCE IV
     Route: 042
     Dates: start: 20051212, end: 20051212
  3. ISOVUE-370 [Suspect]
     Indication: TROPONIN INCREASED
     Dosage: 100 ML ONCE IV
     Route: 042
     Dates: start: 20051212, end: 20051212

REACTIONS (3)
  - CONTRAST MEDIA REACTION [None]
  - SINUS TACHYCARDIA [None]
  - TORSADE DE POINTES [None]
